FAERS Safety Report 19645213 (Version 1)
Quarter: 2021Q3

REPORT INFORMATION
  Report Type: Spontaneous
  Country: US (occurrence: US)
  Receive Date: 20210802
  Receipt Date: 20210802
  Transmission Date: 20211014
  Serious: No
  Sender: FDA-Public Use
  Company Number: US-AUROBINDO-AUR-APL-2021-011593

PATIENT

DRUGS (1)
  1. PHENYTOIN 100MG [Suspect]
     Active Substance: PHENYTOIN
     Indication: SEIZURE
     Dosage: UNK
     Route: 065

REACTIONS (8)
  - Nausea [Unknown]
  - Vomiting [Unknown]
  - Discomfort [Unknown]
  - Loss of personal independence in daily activities [Unknown]
  - Drug intolerance [Unknown]
  - Impaired driving ability [Unknown]
  - Product substitution issue [Unknown]
  - Drug level below therapeutic [Unknown]
